FAERS Safety Report 6254541-5 (Version None)
Quarter: 2009Q3

REPORT INFORMATION
  Report Type: 
  Country: None (occurrence: None)
  Receive Date: 20090702
  Receipt Date: 20090618
  Transmission Date: 20100115
  Serious: Yes (Other)
  Sender: FDA-Public Use
  Company Number: US-PFIZER INC-2009230351

PATIENT
  Sex: Female

DRUGS (4)
  1. PROVERA [Suspect]
     Indication: HORMONE REPLACEMENT THERAPY
     Dosage: 2.5 MG, UNK
     Dates: start: 19930101, end: 20010312
  2. PROVERA [Suspect]
     Dosage: 2.5 MG, UNK
     Dates: start: 20010410, end: 20020402
  3. PREMARIN [Suspect]
     Indication: HORMONE REPLACEMENT THERAPY
     Dosage: 0.625 MG, UNK
     Dates: start: 19930101, end: 20010312
  4. PREMARIN [Suspect]
     Dosage: UNK
     Dates: start: 20010410, end: 20020318

REACTIONS (1)
  - BREAST CANCER FEMALE [None]
